FAERS Safety Report 20814372 (Version 2)
Quarter: 2022Q3

REPORT INFORMATION
  Report Type: Spontaneous
  Country: RU (occurrence: RU)
  Receive Date: 20220511
  Receipt Date: 20220809
  Transmission Date: 20221027
  Serious: Yes (Hospitalization, Other)
  Sender: FDA-Public Use
  Company Number: RU-BAYER-2022P001704

PATIENT
  Age: 21 Year
  Sex: Female

DRUGS (1)
  1. YAZ [Suspect]
     Active Substance: DROSPIRENONE\ETHINYL ESTRADIOL
     Indication: Contraception
     Dosage: UNK
     Route: 048
     Dates: start: 202109

REACTIONS (10)
  - Pulmonary embolism [None]
  - Vena cava thrombosis [None]
  - Pulmonary hypertension [None]
  - Chest pain [Recovered/Resolved]
  - Dyspnoea [Recovered/Resolved]
  - Asthenia [None]
  - Rhinorrhoea [None]
  - Chest pain [None]
  - Dyspnoea exertional [None]
  - Asthenia [None]

NARRATIVE: CASE EVENT DATE: 20220101
